FAERS Safety Report 6640748-1 (Version None)
Quarter: 2010Q1

REPORT INFORMATION
  Report Type: 
  Country: None (occurrence: None)
  Receive Date: 20100318
  Receipt Date: 20100308
  Transmission Date: 20100710
  Serious: Yes (Hospitalization)
  Sender: FDA-Public Use
  Company Number: US-JNJFOC-20091003750

PATIENT
  Sex: Male

DRUGS (4)
  1. REMICADE [Suspect]
     Indication: CROHN'S DISEASE
     Route: 042
     Dates: start: 20090301, end: 20090828
  2. REMICADE [Suspect]
     Route: 042
     Dates: start: 20090301, end: 20090828
  3. REMICADE [Suspect]
     Route: 042
     Dates: start: 20090301, end: 20090828
  4. REMICADE [Suspect]
     Route: 042
     Dates: start: 20090301, end: 20090828

REACTIONS (2)
  - OPPORTUNISTIC INFECTION [None]
  - RENAL ABSCESS [None]
